FAERS Safety Report 8413667-8 (Version None)
Quarter: 2012Q2

REPORT INFORMATION
  Report Type: 
  Country: None (occurrence: None)
  Receive Date: 20120605
  Receipt Date: 20120521
  Transmission Date: 20120825
  Serious: Yes (Death, Other)
  Sender: FDA-Public Use
  Company Number: US-ROCHE-1072482

PATIENT

DRUGS (7)
  1. LEUCOVORIN CALCIUM [Suspect]
     Indication: COLORECTAL CANCER
  2. CETUXIMAB [Suspect]
     Indication: COLORECTAL CANCER
     Dosage: LOADING DOSE OVER 1 HR. FOR 1 DAY
  3. OXALIPLATIN [Suspect]
     Indication: COLORECTAL CANCER
  4. FLUOROURACIL [Suspect]
     Indication: COLORECTAL CANCER
     Route: 040
  5. AVASTIN [Suspect]
     Indication: COLORECTAL CANCER
     Dosage: DAYS 1 AND 15 OVER 30 MINUTES
  6. CETUXIMAB [Suspect]
     Dosage: CYCLE 1
  7. FLUOROURACIL [Suspect]
     Dosage: OVER 24 HRS FOR 2 CONSECUTIVE DAYS
     Route: 042

REACTIONS (22)
  - SEPSIS [None]
  - THROMBOCYTOPENIA [None]
  - DERMATITIS ACNEIFORM [None]
  - FATIGUE [None]
  - CARDIO-RESPIRATORY ARREST [None]
  - COLITIS [None]
  - DEHYDRATION [None]
  - PALMAR-PLANTAR ERYTHRODYSAESTHESIA SYNDROME [None]
  - MUCOSAL INFLAMMATION [None]
  - VENOUS THROMBOSIS [None]
  - MYOCARDIAL INFARCTION [None]
  - PERITONITIS [None]
  - DECREASED APPETITE [None]
  - NEUROPATHY PERIPHERAL [None]
  - RESPIRATORY FAILURE [None]
  - PULMONARY EMBOLISM [None]
  - HYPERTENSION [None]
  - VOMITING [None]
  - CARDIOVASCULAR DISORDER [None]
  - NEUTROPENIA [None]
  - NAUSEA [None]
  - DIARRHOEA [None]
